FAERS Safety Report 18368382 (Version 2)
Quarter: 2020Q4

REPORT INFORMATION
  Report Type: Spontaneous
  Country: US (occurrence: US)
  Receive Date: 20201009
  Receipt Date: 20201103
  Transmission Date: 20210114
  Serious: Yes (Hospitalization, Other)
  Sender: FDA-Public Use
  Company Number: US-009507513-2010USA001253

PATIENT
  Age: 64 Year
  Sex: Female
  Weight: 79.1 kg

DRUGS (1)
  1. KEYTRUDA [Suspect]
     Active Substance: PEMBROLIZUMAB
     Indication: MESOTHELIOMA
     Dosage: UNK
     Dates: start: 20200211

REACTIONS (19)
  - Thyroid mass [Unknown]
  - Cancer pain [Recovered/Resolved]
  - Malignant neoplasm progression [Unknown]
  - Red cell distribution width increased [Unknown]
  - Eosinophil count increased [Unknown]
  - Mediastinal shift [Unknown]
  - Pulmonary fibrosis [Unknown]
  - Skin warm [Unknown]
  - Pleural effusion [Unknown]
  - Dry skin [Unknown]
  - Mean cell volume increased [Unknown]
  - Immature granulocyte count increased [Unknown]
  - Nausea [Unknown]
  - Product use in unapproved indication [Unknown]
  - Neutrophil count increased [Unknown]
  - Monocyte count increased [Unknown]
  - Lymphocyte count decreased [Unknown]
  - Carbon dioxide abnormal [Unknown]
  - Constipation [Unknown]

NARRATIVE: CASE EVENT DATE: 20200211
